FAERS Safety Report 21978007 (Version 1)
Quarter: 2023Q1

REPORT INFORMATION
  Report Type: Spontaneous
  Country: CN (occurrence: CN)
  Receive Date: 20230210
  Receipt Date: 20230210
  Transmission Date: 20230417
  Serious: Yes (Hospitalization, Other)
  Sender: FDA-Public Use
  Company Number: CN-ORGANON-O2301CHN002831

PATIENT
  Age: 78 Year
  Sex: Male

DRUGS (1)
  1. COZAAR [Suspect]
     Active Substance: LOSARTAN POTASSIUM
     Indication: Hypertension
     Dosage: 50 MILLIGRAM (MG), DAILY (QD)
     Route: 048
     Dates: start: 20221228, end: 20230104

REACTIONS (3)
  - Dizziness [Recovering/Resolving]
  - Amaurosis [Recovering/Resolving]
  - Sinus rhythm [Unknown]

NARRATIVE: CASE EVENT DATE: 20230104
